FAERS Safety Report 11112717 (Version 1)
Quarter: 2015Q2

REPORT INFORMATION
  Report Type: Spontaneous
  Country: PL (occurrence: None)
  Receive Date: 20150512
  Receipt Date: 20150512
  Transmission Date: 20150821
  Serious: Yes (Death, Hospitalization, Other)
  Sender: FDA-Public Use
  Company Number: 2015SCAL000200

PATIENT
  Age: 32 Year
  Sex: Female

DRUGS (5)
  1. VALGANCICLOVIR [Concomitant]
     Active Substance: VALGANCICLOVIR
  2. LEFLUNOMIDE (LEFLUNOMIDE) [Suspect]
     Active Substance: LEFLUNOMIDE
     Indication: CYTOMEGALOVIRUS INFECTION
  3. EVEROLIMUS [Concomitant]
     Active Substance: EVEROLIMUS
  4. GANCICLOVIR (GANCICLOVIR) [Suspect]
     Active Substance: GANCICLOVIR
     Indication: CYTOMEGALOVIRUS INFECTION
  5. IMMUNOGLOBULINS () [Suspect]
     Active Substance: HUMAN IMMUNOGLOBULIN G
     Indication: CYTOMEGALOVIRUS INFECTION

REACTIONS (9)
  - Pancytopenia [None]
  - Diabetes mellitus [None]
  - Drug-induced liver injury [None]
  - Cholangitis [None]
  - Seizure [None]
  - Cough [None]
  - Acute hepatitis C [None]
  - Multi-organ failure [None]
  - Diarrhoea [None]
